FAERS Safety Report 14783182 (Version 1)
Quarter: 2018Q2

REPORT INFORMATION
  Report Type: Spontaneous
  Country: US (occurrence: US)
  Receive Date: 20180420
  Receipt Date: 20180420
  Transmission Date: 20180711
  Serious: Yes (Hospitalization)
  Sender: FDA-Public Use
  Company Number: US-PERRIGO-18US003937

PATIENT
  Age: 49 Year
  Sex: Male

DRUGS (1)
  1. LOPERAMIDE HYDROCHLORIDE. [Suspect]
     Active Substance: LOPERAMIDE HYDROCHLORIDE
     Indication: DRUG USE DISORDER
     Dosage: 200-400MG DAILY
     Route: 048

REACTIONS (2)
  - Electrocardiogram abnormal [Recovering/Resolving]
  - Drug abuse [Unknown]
